FAERS Safety Report 7421858-8 (Version None)
Quarter: 2011Q2

REPORT INFORMATION
  Report Type: 
  Country: None (occurrence: None)
  Receive Date: 20110418
  Receipt Date: 20110412
  Transmission Date: 20111010
  Serious: Yes (Hospitalization)
  Sender: FDA-Public Use
  Company Number: US-SANOFI-AVENTIS-2011SA005136

PATIENT
  Age: 82 Year
  Sex: Female
  Weight: 46.72 kg

DRUGS (5)
  1. DRUG USED IN DIABETES [Concomitant]
  2. SOLOSTAR [Suspect]
     Indication: DIABETES MELLITUS
     Dates: start: 20110101
  3. SOLOSTAR [Suspect]
     Dates: start: 20110101
  4. LANTUS [Suspect]
     Indication: TYPE 2 DIABETES MELLITUS
     Dosage: DOSE:12 UNIT(S)
     Route: 058
     Dates: start: 20110113
  5. LANTUS [Suspect]
     Dosage: 8-10 UNIT
     Route: 058
     Dates: start: 20110101

REACTIONS (4)
  - BLOOD GLUCOSE DECREASED [None]
  - DEHYDRATION [None]
  - MALAISE [None]
  - FATIGUE [None]
